FAERS Safety Report 5886286-5 (Version None)
Quarter: 2008Q3

REPORT INFORMATION
  Report Type: 
  Country: None (occurrence: None)
  Receive Date: 20080917
  Receipt Date: 20080908
  Transmission Date: 20090109
  Serious: Yes (Hospitalization)
  Sender: FDA-Public Use
  Company Number: A0729506A

PATIENT
  Age: 61 Year
  Sex: Male
  Weight: 118.2 kg

DRUGS (14)
  1. AVANDIA [Suspect]
     Dosage: 8MG PER DAY
     Route: 048
     Dates: start: 20010301, end: 20051101
  2. SYNTHROID [Concomitant]
  3. HUMALOG [Concomitant]
     Dosage: 70UNIT TWICE PER DAY
     Dates: start: 20000101
  4. REGULAR INSULIN [Concomitant]
     Dates: start: 20040101, end: 20070101
  5. GLARGINE [Concomitant]
     Dates: start: 20040101, end: 20070101
  6. GLIPIZIDE [Concomitant]
     Dates: start: 20010101, end: 20030101
  7. BYETTA [Concomitant]
     Dates: start: 20040101, end: 20060101
  8. LANTUS [Concomitant]
  9. TROGLITAZONE [Concomitant]
  10. LIPITOR [Concomitant]
  11. PROZAC [Concomitant]
  12. GLUCOTROL [Concomitant]
  13. COMBIVENT [Concomitant]
  14. CPAP [Concomitant]

REACTIONS (3)
  - CARDIAC FAILURE CONGESTIVE [None]
  - PULMONARY HYPERTENSION [None]
  - VENTRICULAR DYSFUNCTION [None]
